FAERS Safety Report 4575392-3 (Version None)
Quarter: 2005Q1

REPORT INFORMATION
  Report Type: 
  Country: None (occurrence: None)
  Receive Date: 20050131
  Receipt Date: 20050131
  Transmission Date: 20050727
  Serious: No
  Sender: FDA-Public Use
  Company Number: None

PATIENT
  Age: 67 Year
  Sex: Male

DRUGS (1)
  1. TAXOL [Suspect]
     Dates: start: 20040729

REACTIONS (1)
  - MEDICAL DEVICE COMPLICATION [None]
